FAERS Safety Report 15171702 (Version 2)
Quarter: 2018Q3

REPORT INFORMATION
  Report Type: Spontaneous
  Country: JP (occurrence: JP)
  Receive Date: 20180720
  Receipt Date: 20180801
  Transmission Date: 20181010
  Serious: Yes (Other)
  Sender: FDA-Public Use
  Company Number: JP-JNJFOC-20180630106

PATIENT
  Age: 80 Year
  Sex: Female

DRUGS (9)
  1. EDIROL [Concomitant]
     Active Substance: ELDECALCITOL
     Route: 048
  2. CARBOCISTEINE LYSINE [Concomitant]
     Active Substance: CARBOCYSTEINE LYSINE
     Route: 048
  3. LOXONIN [Concomitant]
     Active Substance: LOXOPROFEN SODIUM
     Route: 048
  4. RHEUMATREX [Concomitant]
     Active Substance: METHOTREXATE SODIUM
     Indication: RHEUMATOID ARTHRITIS
     Route: 048
  5. ATORVASTATIN [Concomitant]
     Active Substance: ATORVASTATIN
     Route: 048
  6. PREDNISOLONE. [Concomitant]
     Active Substance: PREDNISOLONE
     Route: 048
  7. SIMPONI [Suspect]
     Active Substance: GOLIMUMAB
     Indication: RHEUMATOID ARTHRITIS
     Route: 058
     Dates: start: 20140627, end: 20180423
  8. ACTONEL [Concomitant]
     Active Substance: RISEDRONATE SODIUM
     Route: 048
  9. CLARITHROMYCIN. [Concomitant]
     Active Substance: CLARITHROMYCIN
     Route: 048

REACTIONS (5)
  - Infusion related reaction [Recovered/Resolved]
  - Nausea [Recovered/Resolved]
  - Shock [Recovered/Resolved]
  - Blood pressure decreased [Recovered/Resolved]
  - Asthenia [Recovered/Resolved]

NARRATIVE: CASE EVENT DATE: 20180423
